FAERS Safety Report 12157924 (Version 1)
Quarter: 2016Q1

REPORT INFORMATION
  Report Type: Spontaneous
  Country: US (occurrence: US)
  Receive Date: 20160308
  Receipt Date: 20160308
  Transmission Date: 20160526
  Serious: No
  Sender: FDA-Public Use
  Company Number: US-JNJFOC-20150119481

PATIENT
  Sex: Male

DRUGS (6)
  1. ASPIRIN. [Concomitant]
     Active Substance: ASPIRIN
  2. ALLEGRA [Concomitant]
     Active Substance: FEXOFENADINE HYDROCHLORIDE
  3. CENTRUM NOS [Concomitant]
  4. ZYVOX [Concomitant]
     Active Substance: LINEZOLID
  5. HUMALOG [Concomitant]
     Active Substance: INSULIN LISPRO
  6. IMBRUVICA [Suspect]
     Active Substance: IBRUTINIB
     Indication: CHRONIC LYMPHOCYTIC LEUKAEMIA
     Route: 048
     Dates: start: 20140404

REACTIONS (3)
  - Concussion [Unknown]
  - Nasopharyngitis [Unknown]
  - Malaise [Unknown]
